FAERS Safety Report 6557601-4 (Version None)
Quarter: 2010Q1

REPORT INFORMATION
  Report Type: 
  Country: None (occurrence: None)
  Receive Date: 20100129
  Receipt Date: 20100119
  Transmission Date: 20100710
  Serious: Yes (Hospitalization)
  Sender: FDA-Public Use
  Company Number: PHEH2010US01021

PATIENT
  Sex: Female

DRUGS (3)
  1. RECLAST [Suspect]
     Dosage: UNK, ONCE/SINGLE USE
     Dates: start: 20090101, end: 20090101
  2. DIGOXIN [Concomitant]
     Dosage: UNK, UNK
  3. DILTIAZEM [Concomitant]
     Dosage: UNK, UNK

REACTIONS (2)
  - ASTHENIA [None]
  - HEART RATE IRREGULAR [None]
